FAERS Safety Report 7658477-4 (Version None)
Quarter: 2011Q3

REPORT INFORMATION
  Report Type: 
  Country: None (occurrence: None)
  Receive Date: 20110805
  Receipt Date: 20110801
  Transmission Date: 20111222
  Serious: Yes (Other)
  Sender: FDA-Public Use
  Company Number: CN-BAYER-2011-068519

PATIENT
  Age: 43 Year
  Sex: Male

DRUGS (4)
  1. DIAMMONIUM GLYCYRRHIZINATE [Concomitant]
     Indication: CHRONIC HEPATITIS
     Dosage: 250 ML, UNK
  2. BEIKENENG (COENZYME COMPLEX FOR INJECTION) [Concomitant]
     Indication: CHRONIC HEPATITIS
  3. BEIKENENG (COENZYME COMPLEX FOR INJECTION) [Concomitant]
     Indication: HEPATITIS ACUTE
     Dosage: 700 ML, UNK
  4. ULTRAVIST 150 [Suspect]
     Indication: ALLERGY TEST
     Dosage: UNK
     Dates: start: 20110721, end: 20110721

REACTIONS (6)
  - DIZZINESS [None]
  - HYPERHIDROSIS [None]
  - FEELING HOT [None]
  - IODINE ALLERGY [None]
  - LOSS OF CONSCIOUSNESS [None]
  - PALLOR [None]
